FAERS Safety Report 10488706 (Version 2)
Quarter: 2014Q4

REPORT INFORMATION
  Report Type: Spontaneous
  Country: US (occurrence: None)
  Receive Date: 20140930
  Receipt Date: 20141015
  Transmission Date: 20150528
  Serious: Yes (Other)
  Sender: FDA-Public Use
  Company Number: 2014SMT00073

PATIENT
  Age: 66 Year
  Sex: Male
  Weight: 133.8 kg

DRUGS (6)
  1. HUMALOG [Concomitant]
     Active Substance: INSULIN LISPRO
  2. ALLOPURINOL. [Concomitant]
     Active Substance: ALLOPURINOL
  3. REGRANEX [Suspect]
     Active Substance: BECAPLERMIN
     Indication: SKIN ULCER
     Dosage: UNK UNK, EVERY 48 HOURS, TOPICAL
     Route: 061
     Dates: start: 20140904, end: 20140906
  4. LANTUS [Concomitant]
     Active Substance: INSULIN GLARGINE
  5. METFORMIN [Concomitant]
     Active Substance: METFORMIN HYDROCHLORIDE
  6. ALTACE [Concomitant]
     Active Substance: RAMIPRIL

REACTIONS (3)
  - Vertigo [None]
  - Dizziness [None]
  - Blood pressure increased [None]

NARRATIVE: CASE EVENT DATE: 20140906
